FAERS Safety Report 17273785 (Version 1)
Quarter: 2020Q1

REPORT INFORMATION
  Report Type: Spontaneous
  Country: DE (occurrence: DE)
  Receive Date: 20200115
  Receipt Date: 20200115
  Transmission Date: 20200409
  Serious: Yes (Life-Threatening)
  Sender: FDA-Public Use
  Company Number: DE-ANIPHARMA-2020-DE-000001

PATIENT
  Age: 70 Year
  Sex: Female

DRUGS (5)
  1. CANDESARTAN CILEXETIL. [Suspect]
     Active Substance: CANDESARTAN CILEXETIL
     Indication: HYPERTENSION
     Dosage: 1 DF DAILY (16MG)
     Route: 048
     Dates: start: 20191111, end: 20191114
  2. CANDESARTAN. [Suspect]
     Active Substance: CANDESARTAN
     Dosage: 1 A PHARMA
     Route: 065
  3. L-THYROX [Concomitant]
     Active Substance: LEVOTHYROXINE SODIUM
     Dosage: 50 MG DAILY
     Route: 065
  4. METOPROLOL SUCCINATE. [Concomitant]
     Active Substance: METOPROLOL SUCCINATE
     Dosage: DAILY
     Route: 065
  5. CANDESARTAN. [Suspect]
     Active Substance: CANDESARTAN
     Dosage: MYLAN
     Route: 065

REACTIONS (3)
  - Dyspnoea [Unknown]
  - Laryngeal oedema [Unknown]
  - Stridor [Unknown]
